FAERS Safety Report 8896309 (Version 1)
Quarter: 2012Q4

REPORT INFORMATION
  Report Type: Spontaneous
  Country: IT (occurrence: None)
  Receive Date: 20121031
  Receipt Date: 20121031
  Transmission Date: 20130627
  Serious: Yes (Other)
  Sender: FDA-Public Use
  Company Number: 1458062

PATIENT
  Age: 55 Year
  Sex: Female

DRUGS (5)
  1. OXALIPLATIN [Suspect]
     Indication: COLON CANCER
     Route: 041
     Dates: start: 20121004, end: 20121004
  2. ONDANSETRON [Suspect]
     Indication: PREMEDICATION
     Route: 042
  3. PLASIL [Suspect]
     Indication: PREMEDICATION
     Route: 042
  4. TRIMETON [Suspect]
     Indication: PREMEDICATION
     Dosage: 1 DF dosage, form, Intravenous
     Route: 042
  5. SOLDESAM [Suspect]
     Indication: PREMEDICATION
     Route: 042

REACTIONS (4)
  - Pruritus [None]
  - Throat tightness [None]
  - Dyspnoea [None]
  - Infusion related reaction [None]
